FAERS Safety Report 18766864 (Version 1)
Quarter: 2021Q1

REPORT INFORMATION
  Report Type: Spontaneous
  Country: CA (occurrence: CA)
  Receive Date: 20210121
  Receipt Date: 20210121
  Transmission Date: 20210419
  Serious: Yes (Hospitalization)
  Sender: FDA-Public Use
  Company Number: CA-ACCORD-214517

PATIENT
  Age: 55 Year
  Sex: Female

DRUGS (14)
  1. SALBUTAMOL [Concomitant]
     Active Substance: ALBUTEROL
  2. PARACETAMOL [Concomitant]
     Active Substance: ACETAMINOPHEN
  3. BIODERM [Concomitant]
     Dosage: STRENGTH:0.1% , SCALP LOTION
  4. CITALOPRAM [Concomitant]
     Active Substance: CITALOPRAM HYDROBROMIDE
  5. FOLIC ACID. [Concomitant]
     Active Substance: FOLIC ACID
  6. IBUPROFEN. [Concomitant]
     Active Substance: IBUPROFEN
  7. CLONAZEPAM. [Concomitant]
     Active Substance: CLONAZEPAM
  8. DOCETAXEL. [Suspect]
     Active Substance: DOCETAXEL
     Indication: PRODUCT USED FOR UNKNOWN INDICATION
     Dosage: STRENGTH:20 MG/2 ML, 80 MG/8 ML,?160 MG/16 ML VIALS
     Route: 042
  9. MOMETASONE [Concomitant]
     Active Substance: MOMETASONE
  10. RABEPRAZOLE/RABEPRAZOLE SODIUM [Concomitant]
     Active Substance: RABEPRAZOLE SODIUM
  11. BETAMETHASONE. [Concomitant]
     Active Substance: BETAMETHASONE
  12. CARBAMAZEPINE. [Concomitant]
     Active Substance: CARBAMAZEPINE
  13. ZOPICLONE [Concomitant]
     Active Substance: ZOPICLONE
  14. CANDESARTAN. [Concomitant]
     Active Substance: CANDESARTAN

REACTIONS (5)
  - Diarrhoea [Unknown]
  - Hypotension [Unknown]
  - Hyperhidrosis [Unknown]
  - Asthenia [Unknown]
  - Pyrexia [Unknown]
